FAERS Safety Report 20544803 (Version 1)
Quarter: 2022Q1

REPORT INFORMATION
  Report Type: Report from Study
  Country: US (occurrence: US)
  Receive Date: 20220303
  Receipt Date: 20220303
  Transmission Date: 20220424
  Serious: Yes (Other)
  Sender: FDA-Public Use
  Company Number: US-TEVA-777173USA

PATIENT
  Age: 75 Year
  Sex: Female

DRUGS (9)
  1. AUSTEDO [Suspect]
     Active Substance: DEUTETRABENAZINE
     Indication: Huntington^s disease
     Dosage: 6 MILLIGRAM DAILY; FOR 7 DAYS
     Route: 065
     Dates: start: 20170526
  2. AUSTEDO [Suspect]
     Active Substance: DEUTETRABENAZINE
     Indication: Delusion
     Dosage: 12 MILLIGRAM DAILY; FOR 7 DAYS
     Route: 065
  3. AUSTEDO [Suspect]
     Active Substance: DEUTETRABENAZINE
     Dosage: 18 MILLIGRAM DAILY; FOR 3 DAYS
     Route: 065
  4. AUSTEDO [Suspect]
     Active Substance: DEUTETRABENAZINE
     Dosage: 9 MILLIGRAM DAILY;
     Route: 065
     Dates: start: 2017, end: 20170706
  5. RISPERIDONE [Concomitant]
     Active Substance: RISPERIDONE
  6. KLONOPIN [Concomitant]
     Active Substance: CLONAZEPAM
  7. SYNTHROID [Concomitant]
     Active Substance: LEVOTHYROXINE SODIUM
  8. VITAMINS [Concomitant]
     Active Substance: VITAMINS
  9. CITALOPRAM [Concomitant]
     Active Substance: CITALOPRAM HYDROBROMIDE

REACTIONS (10)
  - Confusional state [Recovered/Resolved]
  - Delusion [Recovered/Resolved]
  - Dysphagia [Unknown]
  - Somnolence [Unknown]
  - Anger [Recovered/Resolved]
  - Disease progression [Unknown]
  - Huntington^s disease [Unknown]
  - Drug ineffective [Unknown]
  - Intentional dose omission [Unknown]
  - Product use in unapproved indication [Unknown]

NARRATIVE: CASE EVENT DATE: 20170101
